FAERS Safety Report 5314623-9 (Version None)
Quarter: 2007Q2

REPORT INFORMATION
  Report Type: 
  Country: None (occurrence: None)
  Receive Date: 20070427
  Receipt Date: 20070416
  Transmission Date: 20071010
  Serious: Yes (Hospitalization)
  Sender: FDA-Public Use
  Company Number: 155492ISR

PATIENT
  Age: 75 Year
  Sex: Male

DRUGS (1)
  1. MIRTAZAPINE [Suspect]
     Indication: DEPRESSION
     Dosage: (30 MG); ORAL
     Route: 048
     Dates: start: 20070323, end: 20070324

REACTIONS (2)
  - PURPURA [None]
  - RASH PRURITIC [None]
